FAERS Safety Report 12961123 (Version 1)
Quarter: 2016Q4

REPORT INFORMATION
  Report Type: Spontaneous
  Country: US (occurrence: US)
  Receive Date: 20161121
  Receipt Date: 20161121
  Transmission Date: 20170207
  Serious: No
  Sender: FDA-Public Use
  Company Number: US-PFIZER INC-2016529052

PATIENT
  Age: 81 Year
  Sex: Female

DRUGS (11)
  1. PRADAXA [Concomitant]
     Active Substance: DABIGATRAN ETEXILATE MESYLATE
  2. CALCIUM + D3 [Concomitant]
     Active Substance: CALCIUM\CHOLECALCIFEROL
  3. POTASSIUM [Concomitant]
     Active Substance: POTASSIUM
  4. ARIMIDEX [Concomitant]
     Active Substance: ANASTROZOLE
  5. IBRANCE [Suspect]
     Active Substance: PALBOCICLIB
     Indication: BREAST CANCER FEMALE
     Dosage: 75 MG, DAILY (FOR 21 DAYS)
     Dates: start: 20160920
  6. SIMVASTATIN. [Concomitant]
     Active Substance: SIMVASTATIN
  7. GAVISCON [Concomitant]
     Active Substance: ALUMINUM HYDROXIDE\MAGNESIUM CARBONATE
  8. BUMEX [Concomitant]
     Active Substance: BUMETANIDE
  9. RESTASIS [Concomitant]
     Active Substance: CYCLOSPORINE
  10. CARDIZEM [Concomitant]
     Active Substance: DILTIAZEM HYDROCHLORIDE
  11. ADVIL [Concomitant]
     Active Substance: IBUPROFEN

REACTIONS (1)
  - Neoplasm progression [Unknown]
